FAERS Safety Report 8846848 (Version 1)
Quarter: 2012Q4

REPORT INFORMATION
  Report Type: Spontaneous
  Country: US (occurrence: None)
  Receive Date: 20121017
  Receipt Date: 20121017
  Transmission Date: 20130627
  Serious: Yes (Other)
  Sender: FDA-Public Use
  Company Number: None

PATIENT
  Age: 51 Year
  Sex: Female
  Weight: 63.5 kg

DRUGS (2)
  1. PRISTIQ [Suspect]
     Indication: DEPRESSION
     Dosage: 1 daily po
     Route: 048
     Dates: start: 20110605, end: 20111001
  2. PRISTIQ [Suspect]
     Indication: DEPRESSION
     Dosage: po
     Route: 048
     Dates: start: 20120505, end: 20120808

REACTIONS (17)
  - Treatment noncompliance [None]
  - Drug administration error [None]
  - Self esteem decreased [None]
  - Psychiatric symptom [None]
  - Depression [None]
  - Confusional state [None]
  - Paranoia [None]
  - Anxiety [None]
  - Feelings of worthlessness [None]
  - Suicidal ideation [None]
  - Feeling abnormal [None]
  - Social avoidant behaviour [None]
  - Crying [None]
  - Insomnia [None]
  - Loss of employment [None]
  - Fear [None]
  - Thinking abnormal [None]
